FAERS Safety Report 15711680 (Version 2)
Quarter: 2019Q2

REPORT INFORMATION
  Report Type: Spontaneous
  Country: US (occurrence: US)
  Receive Date: 20181212
  Receipt Date: 20190606
  Transmission Date: 20190711
  Serious: Yes (Other)
  Sender: FDA-Public Use
  Company Number: US-SUN PHARMACEUTICAL INDUSTRIES LTD-2018R1-193303

PATIENT
  Age: 27 Month
  Sex: Female

DRUGS (3)
  1. CEFALEXIN [Suspect]
     Active Substance: CEPHALEXIN
     Indication: STAPHYLOCOCCAL SKIN INFECTION
     Dosage: UNKNOWN
     Route: 048
  2. CEFALEXIN [Suspect]
     Active Substance: CEPHALEXIN
     Indication: STREPTOCOCCAL SEPSIS
  3. PREDNISONE. [Concomitant]
     Active Substance: PREDNISONE
     Indication: SWELLING
     Route: 048

REACTIONS (3)
  - Superinfection [Recovered/Resolved]
  - Diarrhoea [Recovered/Resolved]
  - Clostridium difficile infection [Unknown]
